FAERS Safety Report 16011555 (Version 2)
Quarter: 2019Q3

REPORT INFORMATION
  Report Type: Spontaneous
  Country: US (occurrence: US)
  Receive Date: 20190227
  Receipt Date: 20190726
  Transmission Date: 20191004
  Serious: No
  Sender: FDA-Public Use
  Company Number: US-BIOGEN-2019BI00695714

PATIENT
  Sex: Female

DRUGS (5)
  1. AVONEX [Suspect]
     Active Substance: INTERFERON BETA-1A
     Indication: MULTIPLE SCLEROSIS
     Route: 050
  2. LORAZEPAM. [Concomitant]
     Active Substance: LORAZEPAM
     Indication: TREMOR
     Route: 050
  3. LISINOPRIL. [Concomitant]
     Active Substance: LISINOPRIL
     Route: 050
  4. DRONABINOL. [Concomitant]
     Active Substance: DRONABINOL
     Indication: DECREASED APPETITE
     Route: 050
  5. FLUOXETINE [Concomitant]
     Active Substance: FLUOXETINE HYDROCHLORIDE
     Route: 050

REACTIONS (12)
  - Urinary incontinence [Unknown]
  - Vertigo [Unknown]
  - Stress [Unknown]
  - Cystitis [Unknown]
  - Neuralgia [Unknown]
  - Feeling abnormal [Unknown]
  - Confusional state [Unknown]
  - Urine odour abnormal [Unknown]
  - Urine abnormality [Unknown]
  - Glomerular filtration rate decreased [Unknown]
  - Injury [Unknown]
  - Fall [Recovered/Resolved]
